FAERS Safety Report 5576240-5 (Version None)
Quarter: 2007Q4

REPORT INFORMATION
  Report Type: 
  Country: None (occurrence: None)
  Receive Date: 20071228
  Receipt Date: 20071218
  Transmission Date: 20080405
  Serious: No
  Sender: FDA-Public Use
  Company Number: US-ELI_LILLY_AND_COMPANY-US200711006954

PATIENT
  Age: 45 Year
  Sex: Male

DRUGS (18)
  1. CYMBALTA [Suspect]
     Dosage: UNK, UNK
  2. FENTANYL [Concomitant]
     Route: 061
  3. OXYCODONE HCL [Concomitant]
  4. OXYCONTIN [Concomitant]
  5. FLAGYL [Concomitant]
  6. ERYTHROMYCIN [Concomitant]
  7. PROTONIX [Concomitant]
  8. LISINOPRIL [Concomitant]
  9. LITHIUM CARBONATE [Concomitant]
  10. SEROQUEL [Concomitant]
  11. METOPROLOL [Concomitant]
  12. PLAVIX [Concomitant]
  13. CYTOMEL [Concomitant]
  14. PLETAL [Concomitant]
  15. COLACE [Concomitant]
  16. VYTORIN [Concomitant]
  17. ASPIRIN [Concomitant]
  18. FERROUS SULFATE TAB [Concomitant]

REACTIONS (5)
  - CONCOMITANT DISEASE AGGRAVATED [None]
  - DEPRESSION [None]
  - FISTULA [None]
  - RADIATION INJURY [None]
  - THROAT CANCER [None]
